FAERS Safety Report 7152302-6 (Version None)
Quarter: 2010Q4

REPORT INFORMATION
  Report Type: 
  Country: None (occurrence: None)
  Receive Date: 20101123
  Receipt Date: 20101116
  Transmission Date: 20110411
  Serious: Yes (Other)
  Sender: FDA-Public Use
  Company Number: 2010MA004654

PATIENT
  Age: 35 Year
  Sex: Male

DRUGS (3)
  1. MIRTAZAPINE [Suspect]
     Indication: DEPRESSION
     Dosage: 30 MG; QD; PO
     Route: 048
     Dates: start: 20091101, end: 20100301
  2. SEROQUEL [Suspect]
     Indication: PSYCHOTIC DISORDER
     Dosage: 400 MG; QD; PO
     Route: 048
     Dates: start: 20070101, end: 20100401
  3. DICLOFENAC SODIUM [Concomitant]

REACTIONS (1)
  - MUSCLE TWITCHING [None]
